FAERS Safety Report 22626989 (Version 1)
Quarter: 2023Q2

REPORT INFORMATION
  Report Type: Other
  Country: CA (occurrence: CA)
  Receive Date: 20230622
  Receipt Date: 20230622
  Transmission Date: 20230722
  Serious: Yes (Hospitalization, Other)
  Sender: FDA-Public Use
  Company Number: CA-CELLTRION INC.-2023CA012153

PATIENT

DRUGS (28)
  1. RITUXIMAB [Suspect]
     Active Substance: RITUXIMAB
     Indication: Polymyositis
     Dosage: 1000 MG
     Route: 042
  2. MYCOPHENOLATE MOFETIL [Suspect]
     Active Substance: MYCOPHENOLATE MOFETIL
     Indication: Product used for unknown indication
     Dosage: 1500 MG 2 EVERY 1 DAY
     Route: 048
  3. MYCOPHENOLATE MOFETIL [Suspect]
     Active Substance: MYCOPHENOLATE MOFETIL
     Dosage: 1000 MG  2 EVERY 1 DAY
     Route: 048
  4. ACETAMINOPHEN [Concomitant]
     Active Substance: ACETAMINOPHEN
  5. BENADRYL [Concomitant]
     Active Substance: DIPHENHYDRAMINE HYDROCHLORIDE
     Indication: Premedication
     Dosage: 50 MG
     Route: 048
  6. CALCIUM [Concomitant]
     Active Substance: CALCIUM
  7. CITALOPRAM HYDROBROMIDE [Concomitant]
     Active Substance: CITALOPRAM HYDROBROMIDE
  8. CODEINE [Concomitant]
     Active Substance: CODEINE
     Route: 065
  9. DENOSUMAB [Concomitant]
     Active Substance: DENOSUMAB
  10. DIMENHYDRINATE [Concomitant]
     Active Substance: DIMENHYDRINATE
  11. FERROUS FUMARATE [Concomitant]
     Active Substance: FERROUS FUMARATE
  12. FUSIDIC ACID [Concomitant]
     Active Substance: FUSIDIC ACID
  13. LANSOPRAZOLE [Concomitant]
     Active Substance: LANSOPRAZOLE
  14. LEFLUNOMIDE [Concomitant]
     Active Substance: LEFLUNOMIDE
  15. LOPERAMIDE [Concomitant]
     Active Substance: LOPERAMIDE
  16. POLYETHYLENE GLYCOLS [Concomitant]
     Active Substance: POLYETHYLENE GLYCOLS
  17. MAGNESIUM [Concomitant]
     Active Substance: MAGNESIUM
  18. METOPROLOL [Concomitant]
     Active Substance: METOPROLOL
  19. MIDODRINE [Concomitant]
     Active Substance: MIDODRINE
  20. ONDANSETRON [Concomitant]
     Active Substance: ONDANSETRON
  21. PREDNISONE [Concomitant]
     Active Substance: PREDNISONE
  22. PREGABALIN [Concomitant]
     Active Substance: PREGABALIN
  23. PROLIA [Concomitant]
     Active Substance: DENOSUMAB
     Dosage: 1 EVERY 6 MONTHS
     Route: 065
  24. ROSUVASTATIN CALCIUM [Concomitant]
     Active Substance: ROSUVASTATIN CALCIUM
  25. SOLU-MEDROL [Concomitant]
     Active Substance: METHYLPREDNISOLONE SODIUM SUCCINATE
     Indication: Premedication
     Dosage: 100 MG
     Route: 042
  26. SULFASALAZINE [Concomitant]
     Active Substance: SULFASALAZINE
  27. TYLENOL [Concomitant]
     Active Substance: ACETAMINOPHEN
     Indication: Premedication
     Dosage: 650 MG
     Route: 048
  28. VITAMIN C [Concomitant]
     Active Substance: ASCORBIC ACID

REACTIONS (26)
  - Aortic aneurysm [Unknown]
  - Dyspnoea exertional [Unknown]
  - Finger deformity [Unknown]
  - Gastrointestinal polyp haemorrhage [Unknown]
  - Hand deformity [Unknown]
  - Hip fracture [Unknown]
  - Ill-defined disorder [Unknown]
  - Inflammatory marker increased [Unknown]
  - Joint dislocation [Unknown]
  - Joint stiffness [Unknown]
  - Osteoporosis [Unknown]
  - Palatal ulcer [Unknown]
  - Rales [Unknown]
  - Rheumatoid arthritis [Unknown]
  - Rheumatoid nodule [Unknown]
  - Sclerodactylia [Unknown]
  - Wrist fracture [Unknown]
  - Arthralgia [Unknown]
  - Asthenia [Unknown]
  - Cerebrovascular accident [Unknown]
  - Coronary artery disease [Unknown]
  - Interstitial lung disease [Unknown]
  - Joint swelling [Unknown]
  - Muscular weakness [Unknown]
  - Osteoarthritis [Unknown]
  - Intentional product use issue [Unknown]
